FAERS Safety Report 21839768 (Version 2)
Quarter: 2023Q2

REPORT INFORMATION
  Report Type: Report from Study
  Country: CN (occurrence: CN)
  Receive Date: 20230109
  Receipt Date: 20230407
  Transmission Date: 20230721
  Serious: Yes (Hospitalization)
  Sender: FDA-Public Use
  Company Number: CN-002147023-NVSC2020CN332184

PATIENT
  Age: 52 Year
  Sex: Male
  Weight: 120 kg

DRUGS (8)
  1. ENTRESTO [Suspect]
     Active Substance: SACUBITRIL\VALSARTAN
     Indication: Cardiac failure
     Dosage: 50 MG, BID
     Route: 048
     Dates: start: 20191105, end: 20201125
  2. ENTRESTO [Suspect]
     Active Substance: SACUBITRIL\VALSARTAN
     Dosage: UNK, BID (100MG IN MORNING AND 50 MG IN EVENING)
     Route: 048
     Dates: start: 20201126
  3. LEVAMLODIPINE MALEATE [Concomitant]
     Active Substance: LEVAMLODIPINE MALEATE
     Indication: Hypertension
     Dosage: 2.5 MG, QD
     Route: 065
     Dates: start: 2016
  4. WARFARIN SODIUM [Concomitant]
     Active Substance: WARFARIN SODIUM
     Indication: Cerebral infarction
     Dosage: 3 MG, QD
     Route: 065
     Dates: start: 201910
  5. DOXOFYLLINE [Concomitant]
     Active Substance: DOXOFYLLINE
     Indication: Bronchitis chronic
     Dosage: 0.3 G, QD
     Route: 065
     Dates: start: 20200908
  6. METHOXYPHENAMINE [Concomitant]
     Active Substance: METHOXYPHENAMINE
     Indication: Bronchitis chronic
     Dosage: 2 DF, TID (COMPOUND)
     Route: 065
     Dates: start: 20200909
  7. GLUTAMINE [Concomitant]
     Active Substance: GLUTAMINE
     Indication: Gastritis
     Dosage: 0.67 G, TID
     Route: 065
     Dates: start: 20200909
  8. GUAIAZULENE SODIUM SULPHONATE [Concomitant]
     Indication: Gastritis
     Dosage: 0.67 G, TID
     Route: 065
     Dates: start: 20200909

REACTIONS (10)
  - Cardiac failure [Recovering/Resolving]
  - Cardiac infection [Recovering/Resolving]
  - Chest discomfort [Recovering/Resolving]
  - Dyspnoea [Recovering/Resolving]
  - Nasopharyngitis [Recovering/Resolving]
  - N-terminal prohormone brain natriuretic peptide increased [Recovering/Resolving]
  - Blood pressure abnormal [Recovering/Resolving]
  - Upper respiratory tract infection [Recovered/Resolved]
  - Cough [Recovering/Resolving]
  - Productive cough [Recovering/Resolving]

NARRATIVE: CASE EVENT DATE: 20200905
